FAERS Safety Report 6420914-0 (Version None)
Quarter: 2009Q4

REPORT INFORMATION
  Report Type: 
  Country: None (occurrence: None)
  Receive Date: 20091030
  Receipt Date: 20091022
  Transmission Date: 20100525
  Serious: Yes (Other)
  Sender: FDA-Public Use
  Company Number: KR-JNJFOC-20091003418

PATIENT
  Age: 11 Year
  Sex: Male

DRUGS (2)
  1. CONCERTA [Suspect]
     Dosage: FOR ONE WEEK
     Route: 048
     Dates: start: 20090901, end: 20091001
  2. CONCERTA [Suspect]
     Indication: ATTENTION DEFICIT/HYPERACTIVITY DISORDER
     Dosage: FOR 2 WEEKS
     Route: 048
     Dates: start: 20090901, end: 20091001

REACTIONS (3)
  - DIZZINESS [None]
  - HEADACHE [None]
  - OPTIC NERVE DISORDER [None]
